FAERS Safety Report 6801034-X (Version None)
Quarter: 2010Q2

REPORT INFORMATION
  Report Type: 
  Country: None (occurrence: None)
  Receive Date: 20100629
  Receipt Date: 20100623
  Transmission Date: 20101027
  Serious: Yes (Death, Life-Threatening, Hospitalization)
  Sender: FDA-Public Use
  Company Number: BE-JNJFOC-20100500083

PATIENT
  Age: 61 Year
  Sex: Female

DRUGS (4)
  1. CAELYX [Suspect]
     Indication: URETHRAL CANCER
     Route: 042
  2. INNOHEP [Concomitant]
     Indication: DEEP VEIN THROMBOSIS
     Route: 065
  3. ACETAMINOPHEN [Concomitant]
     Route: 065
  4. OMEPRAZOLE [Concomitant]
     Indication: REFLUX OESOPHAGITIS
     Route: 065

REACTIONS (5)
  - BRONCHOSPASM [None]
  - INFUSION RELATED REACTION [None]
  - OFF LABEL USE [None]
  - RESPIRATORY ARREST [None]
  - URETHRAL CANCER [None]
